FAERS Safety Report 19490343 (Version 2)
Quarter: 2021Q3

REPORT INFORMATION
  Report Type: Spontaneous
  Country: IT (occurrence: IT)
  Receive Date: 20210705
  Receipt Date: 20210705
  Transmission Date: 20211014
  Serious: Yes (Hospitalization)
  Sender: FDA-Public Use
  Company Number: IT-AUROBINDO-AUR-APL-2021-025350

PATIENT
  Age: 37 Year
  Sex: Male

DRUGS (1)
  1. ARIPIPRAZOL AUROBINDO TABLETS 10MG [Suspect]
     Active Substance: ARIPIPRAZOLE
     Indication: SCHIZOPHRENIA
     Dosage: 40 MILLIGRAM, TOTAL
     Route: 048
     Dates: start: 20210212, end: 20210212

REACTIONS (3)
  - Speech disorder [Recovering/Resolving]
  - Hypokinesia [Recovering/Resolving]
  - Accidental exposure to product [Recovering/Resolving]

NARRATIVE: CASE EVENT DATE: 20210212
